FAERS Safety Report 20024205 (Version 6)
Quarter: 2022Q3

REPORT INFORMATION
  Report Type: Spontaneous
  Country: US (occurrence: US)
  Receive Date: 20211102
  Receipt Date: 20220822
  Transmission Date: 20221027
  Serious: No
  Sender: FDA-Public Use
  Company Number: US-PFIZER INC-202101063575

PATIENT
  Age: 34 Year
  Sex: Female

DRUGS (2)
  1. IBRANCE [Suspect]
     Active Substance: PALBOCICLIB
     Indication: Breast cancer stage IV
     Dosage: 100 MG
     Dates: start: 20210501
  2. IBRANCE [Suspect]
     Active Substance: PALBOCICLIB
     Dosage: 100 MG
     Dates: start: 20210603, end: 20220412

REACTIONS (8)
  - Illness [Unknown]
  - Full blood count abnormal [Unknown]
  - Tumour marker increased [Recovered/Resolved]
  - Constipation [Unknown]
  - COVID-19 [Recovered/Resolved]
  - Back pain [Unknown]
  - Axillary pain [Unknown]
  - Paraesthesia [Unknown]

NARRATIVE: CASE EVENT DATE: 20220401
